FAERS Safety Report 4634604-8 (Version None)
Quarter: 2005Q2

REPORT INFORMATION
  Report Type: 
  Country: None (occurrence: None)
  Receive Date: 20050413
  Receipt Date: 20050330
  Transmission Date: 20051028
  Serious: Yes (Hospitalization)
  Sender: FDA-Public Use
  Company Number: 2004084112

PATIENT
  Age: 79 Year
  Sex: Female

DRUGS (4)
  1. UNASYN [Suspect]
     Indication: IMPETIGO
     Dosage: 6 GRAM (3 MG, 2 IN 1 D), INTRAVENOUS
     Route: 042
     Dates: start: 20040822, end: 20040825
  2. CEFDINIR (CEFDINIR) [Suspect]
     Indication: IMPETIGO
     Dosage: 300 MG (150 MG, 2 IN 1 D), ORAL
     Route: 048
     Dates: start: 20040820, end: 20040822
  3. DILTIAZEM HYDROCHLORIDE [Concomitant]
  4. MANIDIPINE HYDROCHLORIDE (MANIDIPINE HYDROCHLORIDE) [Concomitant]

REACTIONS (4)
  - ACUTE GENERALISED EXANTHEMATOUS PUSTULOSIS [None]
  - LYMPHOCYTE STIMULATION TEST POSITIVE [None]
  - SKIN INFLAMMATION [None]
  - THERAPY NON-RESPONDER [None]
